FAERS Safety Report 8275262-3 (Version None)
Quarter: 2012Q2

REPORT INFORMATION
  Report Type: 
  Country: None (occurrence: None)
  Receive Date: 20120411
  Receipt Date: 20120330
  Transmission Date: 20120825
  Serious: Yes (Hospitalization, Other)
  Sender: FDA-Public Use
  Company Number: US-PFIZER INC-2012069941

PATIENT
  Age: 14 Year
  Sex: Female
  Weight: 55 kg

DRUGS (3)
  1. VINORELBINE [Suspect]
     Indication: RHABDOMYOSARCOMA
     Dosage: 25 MG/M2 IV OVER 6-10 MINUTES ON DAYS 1 AND 8
     Route: 042
     Dates: start: 20120201, end: 20120221
  2. TEMSIROLIMUS [Suspect]
     Indication: RHABDOMYOSARCOMA
     Dosage: 15 MG/M2 IV OVER 30-60 MINUTES ON DAYS 1, 8 AND 15
     Route: 042
     Dates: start: 20120214, end: 20120228
  3. CYCLOPHOSPHAMIDE [Suspect]
     Indication: RHABDOMYOSARCOMA
     Dosage: 1200MG/M2/DOSE IV OVER 30-60 MINUTES ON DAY 1
     Route: 042
     Dates: start: 20120214, end: 20120214

REACTIONS (7)
  - FEBRILE NEUTROPENIA [None]
  - ATELECTASIS [None]
  - PLEURAL EFFUSION [None]
  - HYPOXIA [None]
  - PNEUMONITIS [None]
  - HYPOKALAEMIA [None]
  - HYPOTENSION [None]
